FAERS Safety Report 20584007 (Version 1)
Quarter: 2022Q1

REPORT INFORMATION
  Report Type: Spontaneous
  Country: DE (occurrence: DE)
  Receive Date: 20220311
  Receipt Date: 20220311
  Transmission Date: 20220423
  Serious: Yes (Hospitalization, Other)
  Sender: FDA-Public Use
  Company Number: DE-LUPIN PHARMACEUTICALS INC.-2022-03541

PATIENT
  Age: 72 Year
  Sex: Female

DRUGS (3)
  1. LANTHANUM CARBONATE [Suspect]
     Active Substance: LANTHANUM CARBONATE
     Indication: Hyperphosphataemia
     Dosage: 2000 MG, QD
     Route: 048
  2. TACROLIMUS [Suspect]
     Active Substance: TACROLIMUS
     Indication: Immunosuppressant drug therapy
     Dosage: 0.5 MG, QD
     Route: 065
  3. MYCOPHENOLIC ACID [Suspect]
     Active Substance: MYCOPHENOLIC ACID
     Indication: Immunosuppressant drug therapy
     Dosage: 1000 MG, QD
     Route: 065

REACTIONS (6)
  - Gastric disorder [Recovering/Resolving]
  - Reactive gastropathy [Recovering/Resolving]
  - Gastritis haemorrhagic [Recovering/Resolving]
  - Faecaloma [Recovering/Resolving]
  - Subileus [Recovering/Resolving]
  - Vomiting [Recovering/Resolving]
